FAERS Safety Report 4776554-2 (Version None)
Quarter: 2005Q3

REPORT INFORMATION
  Report Type: 
  Country: None (occurrence: None)
  Receive Date: 20050915
  Receipt Date: 20050902
  Transmission Date: 20060218
  Serious: Yes (Other)
  Sender: FDA-Public Use
  Company Number: 2005124899

PATIENT
  Sex: 0

DRUGS (1)
  1. INSPRA [Suspect]
     Indication: ILL-DEFINED DISORDER

REACTIONS (3)
  - CARDIAC FAILURE CHRONIC [None]
  - CONDITION AGGRAVATED [None]
  - DRUG INTOLERANCE [None]
